FAERS Safety Report 8381180-2 (Version None)
Quarter: 2012Q2

REPORT INFORMATION
  Report Type: 
  Country: None (occurrence: None)
  Receive Date: 20120522
  Receipt Date: 20120508
  Transmission Date: 20120825
  Serious: Yes (Life-Threatening, Hospitalization, Congenital Anomaly, Other)
  Sender: FDA-Public Use
  Company Number: E2B_00000209

PATIENT
  Sex: Female
  Weight: 0.82 kg

DRUGS (4)
  1. FOLIC ACID (FOLSAURE) (UNKNOWN) [Concomitant]
  2. BETAMETHASONE [Concomitant]
  3. SERTRALINE HYDROCHLORIDE [Suspect]
     Indication: DEPRESSION
     Dosage: 100 MG (UNKNOWN,DAILY),TRANSPLACENTAL 150 MG (UNKNOWN,DAILY),TRANSPLACENTAL
     Route: 064
     Dates: end: 20110930
  4. SERTRALINE HYDROCHLORIDE [Suspect]
     Indication: DEPRESSION
     Dosage: 100 MG (UNKNOWN,DAILY),TRANSPLACENTAL 150 MG (UNKNOWN,DAILY),TRANSPLACENTAL
     Route: 064
     Dates: start: 20110331, end: 20110816

REACTIONS (12)
  - PATENT DUCTUS ARTERIOSUS [None]
  - PREMATURE BABY [None]
  - MATERNAL DRUGS AFFECTING FOETUS [None]
  - NEPHROCALCINOSIS [None]
  - CONGENITAL CENTRAL NERVOUS SYSTEM ANOMALY [None]
  - RETINOPATHY [None]
  - INFANTILE APNOEIC ATTACK [None]
  - BRADYCARDIA NEONATAL [None]
  - NEONATAL RESPIRATORY DISTRESS SYNDROME [None]
  - NEONATAL HYPOTENSION [None]
  - BRONCHOPULMONARY DYSPLASIA [None]
  - VENTRICULAR SEPTAL DEFECT [None]
